FAERS Safety Report 22654842 (Version 1)
Quarter: 2023Q2

REPORT INFORMATION
  Report Type: Spontaneous
  Country: US (occurrence: US)
  Receive Date: 20230629
  Receipt Date: 20230629
  Transmission Date: 20230721
  Serious: Yes (Hospitalization, Other)
  Sender: FDA-Public Use
  Company Number: US-ALXN-A202308453

PATIENT
  Age: 37 Year
  Sex: Male

DRUGS (1)
  1. SOLIRIS [Suspect]
     Active Substance: ECULIZUMAB
     Indication: Neuromyelitis optica spectrum disorder
     Dosage: UNK
     Route: 065
     Dates: start: 20200527

REACTIONS (9)
  - Stridor [Unknown]
  - Restless legs syndrome [Recovered/Resolved]
  - Gait disturbance [Recovered/Resolved]
  - Laryngeal disorder [Unknown]
  - Surgery [Unknown]
  - Pneumonia aspiration [Unknown]
  - Pneumonia [Unknown]
  - Sepsis [Unknown]
  - Pain in extremity [Recovered/Resolved]

NARRATIVE: CASE EVENT DATE: 20211001
